FAERS Safety Report 11846568 (Version 2)
Quarter: 2016Q1

REPORT INFORMATION
  Report Type: Spontaneous
  Country: US (occurrence: US)
  Receive Date: 20151217
  Receipt Date: 20160203
  Transmission Date: 20160526
  Serious: Yes (Other)
  Sender: FDA-Public Use
  Company Number: US-GLAXOSMITHKLINE-US2015172168

PATIENT
  Age: 68 Year
  Sex: Female

DRUGS (1)
  1. ADVAIR DISKUS [Suspect]
     Active Substance: FLUTICASONE PROPIONATE\SALMETEROL XINAFOATE
     Indication: ASTHMA
     Dosage: UNK, QD
     Route: 055

REACTIONS (6)
  - Cough [Recovering/Resolving]
  - Intentional underdose [Unknown]
  - Intentional product misuse [Unknown]
  - Lower respiratory tract infection viral [Unknown]
  - Viral infection [Recovering/Resolving]
  - Inability to afford medication [Unknown]
